FAERS Safety Report 8986643 (Version 1)
Quarter: 2012Q4

REPORT INFORMATION
  Report Type: Spontaneous
  Country: AT (occurrence: None)
  Receive Date: 20121109
  Receipt Date: 20121109
  Transmission Date: 20130627
  Serious: Yes (Other)
  Sender: FDA-Public Use
  Company Number: 2012S1000016

PATIENT
  Age: 64 Year
  Sex: Male
  Weight: 98 kg

DRUGS (8)
  1. CUBICIN [Suspect]
     Indication: SEPTIC SHOCK
     Route: 042
     Dates: start: 20100608, end: 20100615
  2. ARTERENOL [Concomitant]
  3. DOBUTREX [Concomitant]
  4. SIMDAX [Concomitant]
  5. MIDAZOLAM [Concomitant]
  6. FENTANYL [Concomitant]
  7. HEPARIN [Concomitant]
  8. HYDROCORTISONE [Concomitant]

REACTIONS (1)
  - Rhabdomyolysis [None]
